FAERS Safety Report 4881955-8 (Version None)
Quarter: 2006Q1

REPORT INFORMATION
  Report Type: 
  Country: None (occurrence: None)
  Receive Date: 20060117
  Receipt Date: 20060112
  Transmission Date: 20060701
  Serious: Yes (Life-Threatening, Hospitalization, Other)
  Sender: FDA-Public Use
  Company Number: BR-GLAXOSMITHKLINE-A0589295A

PATIENT
  Age: 76 Year
  Sex: Female

DRUGS (7)
  1. FONDAPARINUX [Suspect]
     Indication: MYOCARDIAL INFARCTION
     Dosage: 2.5MG PER DAY
     Route: 058
     Dates: start: 20041006, end: 20041012
  2. ASPIRIN [Concomitant]
  3. CLOPIDOGREL [Concomitant]
  4. CAPTOPRIL [Concomitant]
  5. CARVEDILOL [Concomitant]
  6. SIMVASTATIN [Concomitant]
  7. FUROSEMIDE [Concomitant]

REACTIONS (5)
  - ASTHENIA [None]
  - COGNITIVE DISORDER [None]
  - DEPRESSED LEVEL OF CONSCIOUSNESS [None]
  - FACIAL PARESIS [None]
  - HAEMORRHAGIC STROKE [None]
